FAERS Safety Report 22220254 (Version 9)
Quarter: 2025Q3

REPORT INFORMATION
  Report Type: Report from Study
  Country: JP (occurrence: JP)
  Receive Date: 20230417
  Receipt Date: 20250825
  Transmission Date: 20251020
  Serious: Yes (Hospitalization, Other)
  Sender: EMD SERONO INC
  Company Number: JP-Merck Healthcare KGaA-9388428

PATIENT
  Age: 72 Year
  Sex: Female
  Weight: 45 kg

DRUGS (4)
  1. BAVENCIO [Suspect]
     Active Substance: AVELUMAB
     Indication: Bladder cancer
     Dates: start: 20221222, end: 20230105
  2. ROSUZET HD [Concomitant]
     Indication: Dyslipidaemia
  3. AMLODIPINE [Concomitant]
     Active Substance: AMLODIPINE BESYLATE
     Indication: Blood pressure measurement
  4. FENOFIBRATE [Concomitant]
     Active Substance: FENOFIBRATE
     Indication: Dyslipidaemia

REACTIONS (4)
  - Interstitial lung disease [Recovering/Resolving]
  - Ileus [Recovered/Resolved]
  - Intestinal obstruction [Unknown]
  - Metastases to abdominal cavity [Unknown]

NARRATIVE: CASE EVENT DATE: 20230122
